FAERS Safety Report 9482675 (Version 1)
Quarter: 2013Q3

REPORT INFORMATION
  Report Type: Spontaneous
  Country: GB (occurrence: GB)
  Receive Date: 20130828
  Receipt Date: 20130828
  Transmission Date: 20140515
  Serious: Yes (Other)
  Sender: FDA-Public Use
  Company Number: GB-TEVA-427880ISR

PATIENT
  Age: 49 Year
  Sex: Female
  Weight: 66.5 kg

DRUGS (5)
  1. METRONIDAZOLE [Suspect]
     Dates: start: 20130808
  2. METRONIDAZOLE [Suspect]
     Dates: start: 20130802
  3. PL 00065/0161 NEXPLANON IMPLANT FOR SUBDERMAL USE 68MG [Concomitant]
     Dates: start: 20110726
  4. AMOXICILLIN [Concomitant]
     Dates: start: 20130513, end: 20130520
  5. BENZYDAMINE HYDROCHLORIDE [Concomitant]
     Dates: start: 20130513, end: 20130520

REACTIONS (3)
  - Joint swelling [Unknown]
  - Vomiting [Unknown]
  - Diarrhoea [Unknown]
